FAERS Safety Report 6573378-0 (Version None)
Quarter: 2010Q1

REPORT INFORMATION
  Report Type: 
  Country: None (occurrence: None)
  Receive Date: 20100208
  Receipt Date: 20100201
  Transmission Date: 20100710
  Serious: Yes (Hospitalization, Other)
  Sender: FDA-Public Use
  Company Number: US-RB-020655-09

PATIENT
  Age: 63 Year
  Sex: Female

DRUGS (5)
  1. SUBOXONE [Suspect]
     Route: 060
  2. SUBOXONE [Suspect]
     Indication: PAIN
     Dosage: TOOK 2-3 TABLETS/DAILY
     Route: 060
     Dates: start: 20060101, end: 20070801
  3. SUBOXONE [Suspect]
     Dosage: TAKES 2-3 TABLETS DAILY
     Route: 060
     Dates: start: 20081201
  4. BENADRYL [Suspect]
     Indication: DRUG USE FOR UNKNOWN INDICATION
     Dosage: DOSING INFORMATION UNKNOWN
     Route: 042
     Dates: start: 20091228, end: 20091228
  5. LOPRESSOR [Concomitant]
     Indication: HYPERTENSION
     Route: 065

REACTIONS (18)
  - AGITATION [None]
  - AORTIC ANEURYSM [None]
  - CARDIAC ARREST [None]
  - CARDIAC OPERATION [None]
  - CEREBROVASCULAR ACCIDENT [None]
  - DISORIENTATION [None]
  - DRUG DEPENDENCE [None]
  - LUNG DISORDER [None]
  - PHARYNGITIS STREPTOCOCCAL [None]
  - PNEUMONIA [None]
  - PYREXIA [None]
  - RESPIRATORY TRACT INFECTION [None]
  - SEPTIC SHOCK [None]
  - STRESS FRACTURE [None]
  - THROMBOSIS [None]
  - TONGUE DISCOLOURATION [None]
  - VISUAL ACUITY REDUCED [None]
  - VOMITING [None]
